FAERS Safety Report 7384850-8 (Version None)
Quarter: 2011Q1

REPORT INFORMATION
  Report Type: 
  Country: None (occurrence: None)
  Receive Date: 20110330
  Receipt Date: 20110321
  Transmission Date: 20110831
  Serious: Yes (Hospitalization)
  Sender: FDA-Public Use
  Company Number: US-ASTRAZENECA-2011SE11793

PATIENT
  Age: 541 Month
  Sex: Female
  Weight: 90.7 kg

DRUGS (1)
  1. SEROQUEL [Suspect]
     Indication: BIPOLAR DISORDER
     Route: 048
     Dates: start: 19870101

REACTIONS (5)
  - FALLOPIAN TUBE CYST [None]
  - PAIN [None]
  - DEPRESSED MOOD [None]
  - GALLBLADDER OPERATION [None]
  - DRUG DOSE OMISSION [None]
